FAERS Safety Report 10071528 (Version 8)
Quarter: 2014Q4

REPORT INFORMATION
  Report Type: Report from Study
  Country: CZ (occurrence: CZ)
  Receive Date: 20140410
  Receipt Date: 20141007
  Transmission Date: 20150528
  Serious: Yes (Death, Life-Threatening, Hospitalization, Other)
  Sender: FDA-Public Use
  Company Number: CZ-ONYX-2014-0674

PATIENT
  Age: 71 Year
  Sex: Female
  Weight: 65 kg

DRUGS (32)
  1. DEGAN [Concomitant]
     Active Substance: METOCLOPRAMIDE HYDROCHLORIDE
     Indication: PROPHYLAXIS OF NAUSEA AND VOMITING
     Route: 042
     Dates: start: 20140120, end: 20140404
  2. DEGAN [Concomitant]
     Active Substance: METOCLOPRAMIDE HYDROCHLORIDE
     Route: 048
     Dates: start: 20140120, end: 20140404
  3. ZOFRAN [Concomitant]
     Active Substance: ONDANSETRON HYDROCHLORIDE
     Indication: PROPHYLAXIS OF NAUSEA AND VOMITING
     Route: 042
     Dates: start: 20140120, end: 20140303
  4. PREDNISONE. [Concomitant]
     Active Substance: PREDNISONE
     Indication: HYPERSENSITIVITY
     Route: 048
     Dates: start: 20140219, end: 20140302
  5. ZOFRAN [Concomitant]
     Active Substance: ONDANSETRON HYDROCHLORIDE
     Indication: ANTIEMETIC SUPPORTIVE CARE
     Route: 060
     Dates: start: 20140325, end: 20140326
  6. ZALDIAR [Concomitant]
     Active Substance: ACETAMINOPHEN\TRAMADOL HYDROCHLORIDE
     Indication: PAIN
     Route: 048
     Dates: start: 20140103, end: 20140326
  7. HERPESIN [Concomitant]
     Route: 048
     Dates: start: 20140217, end: 20140325
  8. PREDNISONE. [Suspect]
     Active Substance: PREDNISONE
     Indication: PLASMA CELL MYELOMA
     Route: 048
     Dates: start: 20140120, end: 20140306
  9. EMZOK [Concomitant]
     Indication: CARDIOVASCULAR EVENT PROPHYLAXIS
     Route: 048
     Dates: start: 2010, end: 20140326
  10. URSOSAN [Concomitant]
     Indication: PROPHYLAXIS
     Route: 048
     Dates: start: 2001, end: 20140302
  11. CARFILZOMIB [Suspect]
     Active Substance: CARFILZOMIB
     Route: 042
     Dates: start: 20140127, end: 20140218
  12. LORADUR [Concomitant]
     Indication: HYPERTENSION
     Route: 048
     Dates: start: 2012, end: 20140326
  13. URSOSAN [Concomitant]
     Route: 048
     Dates: start: 20140304, end: 20140326
  14. CARFILZOMIB [Suspect]
     Active Substance: CARFILZOMIB
     Route: 042
     Dates: start: 20140303, end: 20140325
  15. ZOMETA [Concomitant]
     Active Substance: ZOLEDRONIC ACID
     Indication: BONE DISORDER
     Route: 042
     Dates: start: 20140127, end: 20140303
  16. ZODAC [Concomitant]
     Indication: RASH
     Route: 048
     Dates: start: 20140210, end: 20140226
  17. PREDNISONE. [Concomitant]
     Active Substance: PREDNISONE
     Indication: PREMEDICATION
  18. EPOETIN THETA [Concomitant]
     Active Substance: ERYTHROPOIETIN
     Indication: ANAEMIA
     Route: 058
     Dates: start: 20140325, end: 20140328
  19. PRESTARIUM NEO [Concomitant]
     Indication: HYPERTENSION
     Route: 048
     Dates: start: 2010, end: 20140325
  20. DETRALEX [Concomitant]
     Active Substance: DIOSMIN\HESPERIDIN
     Indication: PERIPHERAL VENOUS DISEASE
     Route: 048
     Dates: start: 20140120, end: 20140302
  21. ALGIFEN NEO [Concomitant]
     Indication: NAUSEA
  22. MILURIT [Concomitant]
     Active Substance: ALLOPURINOL
     Indication: PROPHYLAXIS
     Route: 048
     Dates: start: 20140120, end: 20140302
  23. MELPHALAN [Suspect]
     Active Substance: MELPHALAN
     Indication: PLASMA CELL MYELOMA
     Route: 048
     Dates: start: 20140120, end: 20140306
  24. CITALOPRAM [Concomitant]
     Active Substance: CITALOPRAM HYDROBROMIDE
     Indication: ANXIETY
     Route: 048
     Dates: start: 20140127, end: 20140326
  25. SUMETROLIM [Concomitant]
     Indication: ANTIBIOTIC PROPHYLAXIS
     Route: 048
     Dates: start: 20140217, end: 20140302
  26. ALGIFEN NEO [Concomitant]
     Indication: ABDOMINAL PAIN UPPER
     Route: 048
     Dates: start: 20140324, end: 20140324
  27. CARFILZOMIB [Suspect]
     Active Substance: CARFILZOMIB
     Indication: PLASMA CELL MYELOMA
     Route: 042
     Dates: start: 20140120, end: 20140121
  28. ANOPYRIN [Concomitant]
     Active Substance: ASPIRIN
     Indication: PERIPHERAL VENOUS DISEASE
     Route: 048
     Dates: start: 2012, end: 20140325
  29. PRESTARIUM NEO [Concomitant]
     Route: 048
     Dates: start: 20140326, end: 20140326
  30. HERPESIN [Concomitant]
     Indication: ANTIVIRAL PROPHYLAXIS
     Route: 048
     Dates: start: 20140120, end: 20140214
  31. HELICID [Concomitant]
     Indication: PROPHYLAXIS AGAINST GASTROINTESTINAL ULCER
     Route: 048
     Dates: start: 20140303
  32. BELODERM [Concomitant]
     Active Substance: BETAMETHASONE DIPROPIONATE
     Indication: RASH
     Route: 062
     Dates: start: 20140214, end: 20140226

REACTIONS (4)
  - Cardiac failure [Fatal]
  - Cardiac arrest [None]
  - Pulmonary hypertension [None]
  - Pulmonary oedema [Not Recovered/Not Resolved]

NARRATIVE: CASE EVENT DATE: 20140326
